FAERS Safety Report 17427773 (Version 1)
Quarter: 2020Q1

REPORT INFORMATION
  Report Type: Spontaneous
  Country: DE (occurrence: DE)
  Receive Date: 20200218
  Receipt Date: 20200218
  Transmission Date: 20200409
  Serious: Yes (Other)
  Sender: FDA-Public Use
  Company Number: NVSC2020DE036541

PATIENT
  Age: 29 Year
  Sex: Female

DRUGS (13)
  1. OLAPARIB. [Suspect]
     Active Substance: OLAPARIB
     Indication: PRODUCT USED FOR UNKNOWN INDICATION
     Dosage: DOSE REDUCED
     Route: 065
  2. EPIRUBICIN [Suspect]
     Active Substance: EPIRUBICIN
     Indication: BREAST CANCER
     Dosage: 1 OT, CYCLIC
     Route: 065
  3. CARBOPLATIN. [Suspect]
     Active Substance: CARBOPLATIN
     Indication: BREAST CANCER
     Dosage: 1 OT, CYCLIC
     Route: 065
  4. ENDOXAN [Suspect]
     Active Substance: CYCLOPHOSPHAMIDE
     Dosage: 1 OT, CYCLIC (4 CYCLES)
     Route: 065
     Dates: start: 201510, end: 201604
  5. AVASTIN [Suspect]
     Active Substance: BEVACIZUMAB
     Indication: BREAST CANCER
     Dosage: UNK
     Route: 065
     Dates: start: 201709, end: 201803
  6. CARBOPLATIN. [Suspect]
     Active Substance: CARBOPLATIN
     Dosage: 1 OT, CYCLIC (3 CYCLES)
     Route: 065
     Dates: start: 201508, end: 201604
  7. CAPECITABINE. [Suspect]
     Active Substance: CAPECITABINE
     Indication: BREAST CANCER
     Dosage: UNK
     Route: 065
     Dates: start: 201709, end: 201803
  8. EPIRUBICIN [Suspect]
     Active Substance: EPIRUBICIN
     Dosage: 1 OT, CYCLIC (4 CYCLES)
     Route: 065
     Dates: start: 201508, end: 201604
  9. PACLITAXEL. [Suspect]
     Active Substance: PACLITAXEL
     Dosage: 1 OT, CYCLIC (DOSE REDUCED)
     Route: 065
  10. ERIBULIN [Suspect]
     Active Substance: ERIBULIN
     Indication: BREAST CANCER
     Dosage: UNK
     Route: 065
     Dates: start: 201903
  11. PACLITAXEL. [Suspect]
     Active Substance: PACLITAXEL
     Indication: BREAST CANCER
     Dosage: 1 OT, CYCLIC (12 CYCLES)
     Route: 065
     Dates: start: 201510, end: 201604
  12. ENDOXAN [Suspect]
     Active Substance: CYCLOPHOSPHAMIDE
     Indication: BREAST CANCER
     Dosage: 1 OT, CYCLIC (DOSE REDUCED)
     Route: 065
  13. OLAPARIB. [Suspect]
     Active Substance: OLAPARIB
     Dosage: UNK
     Route: 065
     Dates: start: 201809, end: 201903

REACTIONS (13)
  - Disease recurrence [Unknown]
  - Disease recurrence [Unknown]
  - Metastases to lung [Unknown]
  - Therapy partial responder [Unknown]
  - Disease recurrence [Unknown]
  - Metastases to lymph nodes [Unknown]
  - Malignant neoplasm progression [Unknown]
  - Metastases to lymph nodes [Unknown]
  - Metastases to lymph nodes [Unknown]
  - Anaemia [Unknown]
  - Toxicity to various agents [Unknown]
  - Bone marrow toxicity [Unknown]
  - Metastasis [Unknown]

NARRATIVE: CASE EVENT DATE: 201611
